FAERS Safety Report 6849817-4 (Version None)
Quarter: 2010Q3

REPORT INFORMATION
  Report Type: 
  Country: None (occurrence: None)
  Receive Date: 20100716
  Receipt Date: 20071108
  Transmission Date: 20110219
  Serious: No
  Sender: FDA-Public Use
  Company Number: US-PFIZER INC-2007083663

PATIENT
  Sex: Female

DRUGS (1)
  1. CHANTIX [Suspect]

REACTIONS (6)
  - FATIGUE [None]
  - HEADACHE [None]
  - MENTAL DISORDER [None]
  - MOOD ALTERED [None]
  - PARAESTHESIA [None]
  - SLEEP DISORDER [None]
